FAERS Safety Report 7979547-7 (Version None)
Quarter: 2011Q4

REPORT INFORMATION
  Report Type: 
  Country: None (occurrence: None)
  Receive Date: 20111214
  Receipt Date: 20111201
  Transmission Date: 20120403
  Serious: Yes (Life-Threatening, Hospitalization, Disabling)
  Sender: FDA-Public Use
  Company Number: DE-MPIJNJ-2011-06147

PATIENT

DRUGS (3)
  1. MELPHALAN HYDROCHLORIDE [Concomitant]
     Indication: MULTIPLE MYELOMA
     Dosage: 9 MG/M2, UNK
     Route: 048
     Dates: start: 20110429, end: 20110502
  2. VELCADE [Suspect]
     Indication: MULTIPLE MYELOMA
     Dosage: 1.3 MG/M2, UNK
     Route: 042
     Dates: start: 20110424, end: 20110508
  3. PREDNISOLONE [Concomitant]
     Indication: MULTIPLE MYELOMA
     Dosage: 60 MG/M2, UNK
     Route: 048
     Dates: start: 20110429, end: 20110502

REACTIONS (5)
  - CARDIAC FAILURE [None]
  - PLEURAL EFFUSION [None]
  - PULMONARY OEDEMA [None]
  - PERICARDIAL EFFUSION [None]
  - PNEUMONIA [None]
